FAERS Safety Report 4711381-3 (Version None)
Quarter: 2005Q3

REPORT INFORMATION
  Report Type: 
  Country: None (occurrence: None)
  Receive Date: 20050708
  Receipt Date: 20050627
  Transmission Date: 20060218
  Serious: Yes (Other)
  Sender: FDA-Public Use
  Company Number: 2005095383

PATIENT
  Sex: Female

DRUGS (1)
  1. CELEBREX [Suspect]
     Indication: ILL-DEFINED DISORDER

REACTIONS (5)
  - ECONOMIC PROBLEM [None]
  - FALL [None]
  - IMMOBILE [None]
  - MULTIPLE FRACTURES [None]
  - WEIGHT INCREASED [None]
